FAERS Safety Report 11998998 (Version 2)
Quarter: 2016Q1

REPORT INFORMATION
  Report Type: Spontaneous
  Country: FR (occurrence: FR)
  Receive Date: 20160204
  Receipt Date: 20160304
  Transmission Date: 20160526
  Serious: Yes (Death, Hospitalization, Other)
  Sender: FDA-Public Use
  Company Number: FR-BRISTOL-MYERS SQUIBB COMPANY-BMS-2016-004215

PATIENT
  Age: 85 Year
  Sex: Female

DRUGS (2)
  1. HYDREA [Suspect]
     Active Substance: HYDROXYUREA
     Indication: ACUTE MYELOID LEUKAEMIA
     Dosage: 1 DF, BID
     Route: 048
     Dates: start: 20151109, end: 20151126
  2. DANATROL [Concomitant]
     Active Substance: DANAZOL
     Indication: THROMBOCYTOPENIA
     Dosage: UNK, BID
     Route: 048
     Dates: start: 201408, end: 20151109

REACTIONS (5)
  - Neutropenia [Recovered/Resolved]
  - Off label use [Unknown]
  - Malignant neoplasm progression [Fatal]
  - Pharyngeal haemorrhage [Unknown]
  - Epistaxis [Unknown]

NARRATIVE: CASE EVENT DATE: 20151126
